FAERS Safety Report 7301483-X (Version None)
Quarter: 2011Q1

REPORT INFORMATION
  Report Type: 
  Country: None (occurrence: None)
  Receive Date: 20110218
  Receipt Date: 20100412
  Transmission Date: 20110831
  Serious: Yes (Other)
  Sender: FDA-Public Use
  Company Number: US-BRISTOL-MYERS SQUIBB COMPANY-15031206

PATIENT
  Age: 42 Year
  Sex: Female
  Weight: 50 kg

DRUGS (1)
  1. KENALOG [Suspect]
     Indication: DERMATITIS
     Dosage: INJECTED INTO RIGHT UPPER LEG/HIP;NEAR GLUTEAL MUSCLE.
     Route: 030
     Dates: start: 20080211

REACTIONS (1)
  - INJECTION SITE ATROPHY [None]
